FAERS Safety Report 12498068 (Version 2)
Quarter: 2016Q3

REPORT INFORMATION
  Report Type: Report from Study
  Country: US (occurrence: US)
  Receive Date: 20160626
  Receipt Date: 20160703
  Transmission Date: 20161109
  Serious: Yes (Hospitalization, Other)
  Sender: FDA-Public Use
  Company Number: US-BAXTER-2016BAX028453

PATIENT
  Age: 12 Year
  Sex: Male
  Weight: 50 kg

DRUGS (34)
  1. IFOSFAMIDE FOR INJECTION [Suspect]
     Active Substance: IFOSFAMIDE
     Indication: ANAPLASTIC LARGE CELL LYMPHOMA T- AND NULL-CELL TYPES
     Dosage: OVER 60 MINS ON DAYS 1-5, COURSE A, CYCLES 1, 3, 5 (CYCLE OF 21 DAYS)
     Route: 042
     Dates: start: 20151130
  2. DEXAMETHASONE. [Suspect]
     Active Substance: DEXAMETHASONE
     Dosage: COURSE B (21 DAYS), CYCLES 2, 4, ON DAYS 1-5
     Route: 048
  3. ETOPOSIDE VP-16 [Suspect]
     Active Substance: ETOPOSIDE
     Indication: ANAPLASTIC LARGE CELL LYMPHOMA T- AND NULL-CELL TYPES
     Dosage: COURSE A (21 DAYS), CYCLES 1, 3, 5, OVER 2 HOURS ON DAYS 4 AND 5
     Route: 042
  4. MESNA FOR INJECTION 1 GRAM [Suspect]
     Active Substance: MESNA
     Indication: PRODUCT USED FOR UNKNOWN INDICATION
     Dosage: CYCLE 1
     Route: 065
     Dates: start: 20151207, end: 20151212
  5. IFOSFAMIDE FOR INJECTION [Suspect]
     Active Substance: IFOSFAMIDE
     Dosage: LAST ADMINISTERED DATE (CYCLE 5)
     Route: 042
     Dates: start: 20160316, end: 20160316
  6. DEXAMETHASONE. [Suspect]
     Active Substance: DEXAMETHASONE
     Indication: ANAPLASTIC LARGE CELL LYMPHOMA T- AND NULL-CELL TYPES
     Dosage: PROPHASE: ONCE DAILY ON DAYS 1 AND 2
     Route: 048
  7. HYDROCORTISONE. [Suspect]
     Active Substance: HYDROCORTISONE
     Indication: ANAPLASTIC LARGE CELL LYMPHOMA T- AND NULL-CELL TYPES
     Dosage: PROPHASE: 7.5 MG-12 MG ON DAY 1 (AGE BASED DOSING)
     Route: 037
  8. MESNA FOR INJECTION 1 GRAM [Suspect]
     Active Substance: MESNA
     Dosage: CYCLE 3
     Route: 065
     Dates: start: 20160122, end: 20160126
  9. MESNA FOR INJECTION 1 GRAM [Suspect]
     Active Substance: MESNA
     Dosage: CYCLE 5
     Route: 065
     Dates: start: 20160312, end: 20160316
  10. METHOTREXATE SODIUM. [Suspect]
     Active Substance: METHOTREXATE SODIUM
     Indication: ANAPLASTIC LARGE CELL LYMPHOMA T- AND NULL-CELL TYPES
     Dosage: PROPHASE: 7.5 MG - 12 MG ON DAY 1 (AGE BASED DOSING)
     Route: 037
  11. ETOPOSIDE VP-16 [Suspect]
     Active Substance: ETOPOSIDE
     Dosage: LAST ADMINISTERED DATE (CYCLE 5)
     Route: 042
     Dates: start: 20160316, end: 20160316
  12. LEUCOVORIN. [Suspect]
     Active Substance: LEUCOVORIN
     Dosage: CYCLE 6
     Route: 065
     Dates: start: 20160403, end: 20160409
  13. CRIZOTINIB [Suspect]
     Active Substance: CRIZOTINIB
     Indication: ANAPLASTIC LARGE CELL LYMPHOMA T- AND NULL-CELL TYPES
     Dosage: COURSE A (21 DAYS), CYCLES 1, 3, 5, TWICE DAILY ON DAYS 1-21
     Route: 048
     Dates: start: 20151130
  14. CRIZOTINIB [Suspect]
     Active Substance: CRIZOTINIB
     Dosage: COURSE B (21 DAYS), CYCLES 2, 4, TWICE DAILY ON DAYS 1-21
     Route: 048
  15. METHOTREXATE SODIUM. [Suspect]
     Active Substance: METHOTREXATE SODIUM
     Dosage: COURSE A (21 DAYS), CYCLES 1, 3, 5, ON DAY 1
     Route: 042
  16. CYTARABINE. [Suspect]
     Active Substance: CYTARABINE
     Dosage: COURSE A (21 DAYS), CYCLES 1, 3, 5, OVER 1-30 MINUTES EVERY 12 HOURS, ON DAYS 4 AND 5 (TOTAL 4 DOSES
     Route: 042
  17. CYTARABINE. [Suspect]
     Active Substance: CYTARABINE
     Dosage: LAST ADMINISTERED DATE (CYCLE 5)
     Route: 042
     Dates: start: 20160316, end: 20160316
  18. LEUCOVORIN. [Suspect]
     Active Substance: LEUCOVORIN
     Dosage: CYCLE 2
     Route: 065
     Dates: start: 20151231, end: 20160301
  19. LEUCOVORIN. [Suspect]
     Active Substance: LEUCOVORIN
     Dosage: CYCLE 3
     Route: 065
     Dates: start: 20160123, end: 20160124
  20. CYCLOPHOSPHAMIDE FOR INJECTION, USP [Suspect]
     Active Substance: CYCLOPHOSPHAMIDE
     Indication: ANAPLASTIC LARGE CELL LYMPHOMA T- AND NULL-CELL TYPES
     Dosage: PROPHASE: OVER 15-30 MINUTES ON DAYS 1 AND 2
     Route: 042
  21. CRIZOTINIB [Suspect]
     Active Substance: CRIZOTINIB
     Dosage: COURSE B (21 DAYS), CYCLE 6, TWICE DAILY ON DAYS 1-21
     Route: 048
     Dates: start: 20160402, end: 20160411
  22. DEXAMETHASONE. [Suspect]
     Active Substance: DEXAMETHASONE
     Dosage: PROPHASE: BID ON DAYS 3-5
     Route: 048
  23. DEXAMETHASONE. [Suspect]
     Active Substance: DEXAMETHASONE
     Dosage: COURSE A (21 DAYS CYCLES), CYCLE 1, 3, 5, TWICE DAILY ON DAYS 1-5
     Route: 048
  24. DEXAMETHASONE. [Suspect]
     Active Substance: DEXAMETHASONE
     Dosage: COURSE B (21 DAYS), CYCLES 6 ON DAYS 1-5
     Route: 048
     Dates: start: 20160402, end: 20160406
  25. CYTARABINE. [Suspect]
     Active Substance: CYTARABINE
     Indication: ANAPLASTIC LARGE CELL LYMPHOMA T- AND NULL-CELL TYPES
     Dosage: PROPHASE: 15-24 MG ON DAY 1 (AGE BASED DOSING)
     Route: 037
  26. CYCLOPHOSPHAMIDE FOR INJECTION, USP [Suspect]
     Active Substance: CYCLOPHOSPHAMIDE
     Dosage: COURSE B (21 DAYS), CYCLES 2, 4, OVER 15-30 MINUTES ON DAYS 1-5
     Route: 042
     Dates: start: 20160402, end: 20160406
  27. LEUCOVORIN. [Suspect]
     Active Substance: LEUCOVORIN
     Indication: PRODUCT USED FOR UNKNOWN INDICATION
     Dosage: CYCLE 1
     Route: 065
     Dates: start: 20150209, end: 20150210
  28. LEUCOVORIN. [Suspect]
     Active Substance: LEUCOVORIN
     Dosage: CYCLE 5
     Route: 065
     Dates: start: 20160313, end: 20160315
  29. CYCLOPHOSPHAMIDE FOR INJECTION, USP [Suspect]
     Active Substance: CYCLOPHOSPHAMIDE
     Dosage: COURSE B (21 DAYS), CYCLES 2, 4, OVER 15-30 MINUTES ON DAYS 1-5
     Route: 042
  30. DOXORUBICIN HYDROCHLORIDE. [Suspect]
     Active Substance: DOXORUBICIN HYDROCHLORIDE
     Indication: ANAPLASTIC LARGE CELL LYMPHOMA T- AND NULL-CELL TYPES
     Dosage: COURSE B (21 DAYS), CYCLES 2, 4, OVER 1-15 MIN ON DAYS 4 AND 5
     Route: 042
  31. DOXORUBICIN HYDROCHLORIDE. [Suspect]
     Active Substance: DOXORUBICIN HYDROCHLORIDE
     Dosage: COURSE B (21 DAYS), CYCLE 6, OVER 1-15 MIN ON DAYS 4 AND 5
     Route: 042
     Dates: start: 20160405, end: 20160406
  32. METHOTREXATE SODIUM. [Suspect]
     Active Substance: METHOTREXATE SODIUM
     Dosage: COURSE B (21 DAYS), CYCLES 2, 4, ON DAY 1
     Route: 042
  33. METHOTREXATE SODIUM. [Suspect]
     Active Substance: METHOTREXATE SODIUM
     Dosage: COURSE B (21 DAYS), CYCLE 6, ON DAY 1
     Route: 042
     Dates: start: 20160402, end: 20160402
  34. LEUCOVORIN. [Suspect]
     Active Substance: LEUCOVORIN
     Dosage: CYCLE 4
     Route: 065
     Dates: start: 20160221, end: 20160222

REACTIONS (10)
  - Thrombocytopenia [Unknown]
  - Hypotension [Unknown]
  - Pulmonary oedema [Unknown]
  - Stomatitis [Unknown]
  - Febrile neutropenia [Unknown]
  - Bacterial sepsis [Unknown]
  - Rhinovirus infection [Unknown]
  - Anaemia [Unknown]
  - Respiratory failure [Unknown]
  - Septic shock [Unknown]

NARRATIVE: CASE EVENT DATE: 20160413
